FAERS Safety Report 5017834-5 (Version None)
Quarter: 2006Q2

REPORT INFORMATION
  Report Type: 
  Country: None (occurrence: None)
  Receive Date: 20060605
  Receipt Date: 20060524
  Transmission Date: 20061013
  Serious: Yes (Hospitalization)
  Sender: FDA-Public Use
  Company Number: US-RB-3354-2006

PATIENT
  Sex: Male
  Weight: 92.62 kg

DRUGS (4)
  1. SUBOXONE [Suspect]
     Indication: DRUG DEPENDENCE
     Route: 060
     Dates: start: 20060115, end: 20060514
  2. SUBOXONE [Suspect]
     Route: 060
     Dates: start: 20060515
  3. BACTRIM [Concomitant]
     Dosage: ONE TABLET TWICE DAILY
     Route: 048
     Dates: start: 20060523
  4. MEDICINALPRODUCT NOT SPECIFIED BY SENDER [Concomitant]
     Dates: start: 20060518, end: 20060523

REACTIONS (2)
  - BACTERIAL INFECTION [None]
  - PYREXIA [None]
